FAERS Safety Report 21264592 (Version 2)
Quarter: 2022Q3

REPORT INFORMATION
  Report Type: Other
  Country: US (occurrence: None)
  Receive Date: 20220829
  Receipt Date: 20220912
  Transmission Date: 20221026
  Serious: No
  Sender: FDA-Public Use
  Company Number: US-ROCHE-3168462

PATIENT
  Sex: Female

DRUGS (1)
  1. OCREVUS [Suspect]
     Active Substance: OCRELIZUMAB
     Indication: Relapsing multiple sclerosis
     Dosage: YES, DISPENSE 1 300-MG VIAL, ANTICIPATED DATE OF TREATMENT:  25/OCT/2017, 09/NOV/2017, 27/NOV/2020,
     Route: 042
     Dates: start: 20171025

REACTIONS (2)
  - Blood immunoglobulin G increased [Not Recovered/Not Resolved]
  - COVID-19 [Recovered/Resolved]
